FAERS Safety Report 21176038 (Version 1)
Quarter: 2022Q3

REPORT INFORMATION
  Report Type: Spontaneous
  Country: US (occurrence: None)
  Receive Date: 20220804
  Receipt Date: 20220804
  Transmission Date: 20221026
  Serious: Yes (Other)
  Sender: FDA-Public Use
  Company Number: None

PATIENT
  Age: 60 Year
  Sex: Female
  Weight: 98.43 kg

DRUGS (1)
  1. PAXLOVID [Suspect]
     Active Substance: NIRMATRELVIR\RITONAVIR
     Indication: COVID-19
     Dosage: FREQUENCY : TWICE A DAY;?
     Route: 048

REACTIONS (7)
  - COVID-19 [None]
  - Condition aggravated [None]
  - Nasal congestion [None]
  - Cough [None]
  - Headache [None]
  - Dyspnoea [None]
  - Dysgeusia [None]

NARRATIVE: CASE EVENT DATE: 20220730
